FAERS Safety Report 8288451-9 (Version None)
Quarter: 2012Q2

REPORT INFORMATION
  Report Type: 
  Country: None (occurrence: None)
  Receive Date: 20120416
  Receipt Date: 20120405
  Transmission Date: 20120825
  Serious: Yes (Hospitalization)
  Sender: FDA-Public Use
  Company Number: FR-ROCHE-1057646

PATIENT
  Sex: Male
  Weight: 86 kg

DRUGS (3)
  1. ZELBORAF [Suspect]
     Route: 048
     Dates: start: 20111024, end: 20111114
  2. ZELBORAF [Suspect]
     Route: 048
     Dates: start: 20111123
  3. ZELBORAF [Suspect]
     Indication: METASTATIC MALIGNANT MELANOMA
     Route: 048
     Dates: start: 20110914, end: 20111017

REACTIONS (3)
  - ARTHRALGIA [None]
  - RASH PAPULAR [None]
  - SARCOIDOSIS [None]
